FAERS Safety Report 5994144-0 (Version None)
Quarter: 2008Q4

REPORT INFORMATION
  Report Type: 
  Country: None (occurrence: None)
  Receive Date: 20081210
  Receipt Date: 20081125
  Transmission Date: 20090506
  Serious: Yes (Hospitalization)
  Sender: FDA-Public Use
  Company Number: 2008S1021451

PATIENT
  Age: 77 Year
  Sex: Female
  Weight: 57 kg

DRUGS (2)
  1. NEBIVOLOL HCL [Suspect]
     Indication: HYPERTENSION
     Dosage: 5 MG, TWICE A DAY; ORAL
     Route: 048
     Dates: start: 20080901, end: 20081007
  2. MARCUMAR [Concomitant]

REACTIONS (1)
  - TORSADE DE POINTES [None]
